FAERS Safety Report 20449219 (Version 2)
Quarter: 2022Q1

REPORT INFORMATION
  Report Type: Report from Study
  Country: TW (occurrence: TW)
  Receive Date: 20220209
  Receipt Date: 20220309
  Transmission Date: 20220423
  Serious: Yes (Hospitalization)
  Sender: FDA-Public Use
  Company Number: TW-SEATTLE GENETICS-2022SGN00677

PATIENT
  Age: 68 Year
  Sex: Female
  Weight: 47 kg

DRUGS (2)
  1. ENFORTUMAB VEDOTIN [Suspect]
     Active Substance: ENFORTUMAB VEDOTIN
     Indication: Transitional cell carcinoma
     Dosage: 1.25 MG/KG, CYCLIC (1.25 MG/KG ON DAYS 1 AND 8 OF EVERY 3-WEEK CYCLE)
     Route: 042
     Dates: start: 20211110
  2. PEMBROLIZUMAB [Suspect]
     Active Substance: PEMBROLIZUMAB
     Indication: Transitional cell carcinoma
     Route: 042
     Dates: start: 20211110

REACTIONS (1)
  - Hyponatraemia [Not Recovered/Not Resolved]

NARRATIVE: CASE EVENT DATE: 20220131
